FAERS Safety Report 8571622 (Version 10)
Quarter: 2013Q2

REPORT INFORMATION
  Report Type: Spontaneous
  Country: US (occurrence: US)
  Receive Date: 20120521
  Receipt Date: 20130425
  Transmission Date: 20140414
  Serious: Yes (Hospitalization, Disabling, Other)
  Sender: FDA-Public Use
  Company Number: US-009507513-1205USA02886

PATIENT
  Sex: Male
  Weight: 49.43 kg

DRUGS (12)
  1. FOSAMAX [Suspect]
     Indication: OSTEOGENESIS IMPERFECTA
     Dosage: 10 MG, QD
     Route: 048
     Dates: start: 20071003, end: 20100328
  2. FOSAMAX [Suspect]
     Indication: BONE LOSS
  3. FOSAMAX [Suspect]
     Indication: OSTEOPOROSIS
  4. ALENDRONATE SODIUM [Suspect]
     Dosage: 10 MG, QD
     Route: 048
  5. CALCIUM (UNSPECIFIED) [Concomitant]
     Indication: OSTEOGENESIS IMPERFECTA
  6. VITAMIN D (UNSPECIFIED) [Concomitant]
     Indication: OSTEOGENESIS IMPERFECTA
  7. LISINOPRIL [Concomitant]
     Indication: HYPERLIPIDAEMIA
  8. LISINOPRIL [Concomitant]
     Indication: HYPERTENSION
  9. METOPROLOL [Concomitant]
     Indication: HYPERTENSION
  10. TOPROL XL TABLETS [Concomitant]
     Indication: HYPERTENSION
  11. VYTORIN [Concomitant]
     Indication: HYPERLIPIDAEMIA
     Route: 048
  12. PLAVIX [Concomitant]
     Indication: HYPERTENSION

REACTIONS (92)
  - Femur fracture [Not Recovered/Not Resolved]
  - Intramedullary rod insertion [Unknown]
  - Femur fracture [Unknown]
  - Femur fracture [Unknown]
  - Osteoporosis [Not Recovered/Not Resolved]
  - Stress fracture [Not Recovered/Not Resolved]
  - Surgery [Unknown]
  - Catheterisation cardiac [Unknown]
  - Coronary artery occlusion [Unknown]
  - Low turnover osteopathy [Not Recovered/Not Resolved]
  - Chest pain [Unknown]
  - Coronary artery disease [Unknown]
  - Coronary arterial stent insertion [Unknown]
  - Aortic aneurysm repair [Unknown]
  - Tibia fracture [Unknown]
  - Spinal fracture [Unknown]
  - Craniocerebral injury [Unknown]
  - Bone operation [Unknown]
  - Appendicectomy [Unknown]
  - Haemorrhage [Unknown]
  - Laceration [Unknown]
  - Laceration [Unknown]
  - Periorbital haemorrhage [Unknown]
  - Fall [Not Recovered/Not Resolved]
  - Myocardial infarction [Unknown]
  - Chest pain [Unknown]
  - Neck pain [Unknown]
  - Headache [Unknown]
  - Chest discomfort [Unknown]
  - Aortic aneurysm [Unknown]
  - Myofascial pain syndrome [Unknown]
  - Osteopenia [Unknown]
  - Spinal compression fracture [Unknown]
  - Osteoarthritis [Unknown]
  - Spinal osteoarthritis [Unknown]
  - Ankle fracture [Unknown]
  - Limb deformity [Unknown]
  - Kyphosis [Unknown]
  - Chronic obstructive pulmonary disease [Not Recovered/Not Resolved]
  - Tachycardia [Unknown]
  - Leukocytosis [Unknown]
  - Hypokalaemia [Unknown]
  - Spinal osteoarthritis [Unknown]
  - Muscle strain [Unknown]
  - Dwarfism [Unknown]
  - Carotid artery disease [Unknown]
  - Kyphoscoliosis [Unknown]
  - Lower limb fracture [Unknown]
  - Lower limb fracture [Unknown]
  - Fracture [Unknown]
  - Cholelithiasis [Unknown]
  - Adrenal adenoma [Unknown]
  - Vascular calcification [Unknown]
  - Arteriosclerosis coronary artery [Unknown]
  - Blood pressure increased [Unknown]
  - Drug withdrawal syndrome [Unknown]
  - Cholelithiasis [Unknown]
  - Purulence [Unknown]
  - Emphysema [Unknown]
  - Aortic dilatation [Unknown]
  - Diverticulum intestinal [Unknown]
  - Insomnia [Unknown]
  - Wound infection staphylococcal [Unknown]
  - Wound [Unknown]
  - Abscess limb [Unknown]
  - Pain [Not Recovered/Not Resolved]
  - Loose body in joint [Unknown]
  - Fall [Unknown]
  - Fracture nonunion [Not Recovered/Not Resolved]
  - Fracture nonunion [Unknown]
  - Hypotension [Unknown]
  - Contusion [Unknown]
  - Extremity contracture [Unknown]
  - Crepitations [Unknown]
  - Atelectasis [Unknown]
  - Cellulitis [Unknown]
  - Fall [Unknown]
  - Pulmonary fibrosis [Unknown]
  - Osteomyelitis [Unknown]
  - Knee deformity [Unknown]
  - Subarachnoid haemorrhage [Unknown]
  - Joint contracture [Unknown]
  - Impaired healing [Unknown]
  - Neuralgia [Unknown]
  - Fall [Unknown]
  - Abdominal pain upper [Unknown]
  - Nausea [Unknown]
  - Arthralgia [Unknown]
  - Back pain [Not Recovered/Not Resolved]
  - Off label use [Unknown]
  - Abdominal pain upper [Unknown]
  - Headache [Unknown]
